FAERS Safety Report 10081490 (Version 1)
Quarter: 2014Q2

REPORT INFORMATION
  Report Type: Spontaneous
  Country: GB (occurrence: GB)
  Receive Date: 20140416
  Receipt Date: 20140416
  Transmission Date: 20141212
  Serious: Yes (Life-Threatening, Other)
  Sender: FDA-Public Use
  Company Number: GB-PFIZER INC-2014105852

PATIENT
  Age: 14 Year
  Sex: Male
  Weight: 52 kg

DRUGS (1)
  1. IBUPROFEN [Suspect]
     Dosage: 200 MG, UNK
     Route: 048
     Dates: end: 2014

REACTIONS (4)
  - Toxic epidermal necrolysis [Recovered/Resolved with Sequelae]
  - Stevens-Johnson syndrome [Recovered/Resolved with Sequelae]
  - Skin exfoliation [Unknown]
  - Skin lesion [Unknown]
